FAERS Safety Report 6719784-2 (Version None)
Quarter: 2010Q2

REPORT INFORMATION
  Report Type: 
  Country: None (occurrence: None)
  Receive Date: 20100505
  Receipt Date: 20100419
  Transmission Date: 20101027
  Serious: Yes (Life-Threatening, Hospitalization)
  Sender: FDA-Public Use
  Company Number: 2010040049

PATIENT
  Age: 84 Year
  Sex: Female
  Weight: 72 kg

DRUGS (11)
  1. TORSEMIDE [Suspect]
     Indication: HYPERTENSION
     Dosage: (5 MG), ORAL
     Route: 048
     Dates: start: 20091006, end: 20091126
  2. XIPAMID (XIPAMIDE) [Suspect]
     Indication: HYPERTENSION
     Dosage: (10 MG), ORAL
     Route: 048
     Dates: start: 20091006, end: 20091126
  3. SPIRONOLACTONE [Suspect]
     Indication: HYPERTENSION
     Dosage: (25 MG), ORAL
     Route: 048
     Dates: start: 20091006, end: 20091126
  4. RAMIPRIL [Suspect]
     Indication: HYPERTENSION
     Dosage: (2.5 MG), ORAL
     Route: 048
     Dates: start: 20091006, end: 20091126
  5. MICTONORM (PROPIVERINE HCL) [Suspect]
     Indication: STRESS URINARY INCONTINENCE
     Dosage: (15 MG), ORAL
     Route: 048
     Dates: start: 20091006, end: 20091126
  6. MELPERON (MELPERONE HCL) [Suspect]
     Indication: VASCULAR DEMENTIA
     Dosage: (25 MG), ORAL
     Route: 048
     Dates: start: 20091006, end: 20091126
  7. AKINETON [Concomitant]
  8. ZOLPIDEM AL (ZOLPIDEM) [Concomitant]
  9. PANTOPRAZOL (PANTOPRAZOLE) [Concomitant]
  10. CLOPIDOGREL [Concomitant]
  11. SIMVASTATIN [Concomitant]

REACTIONS (16)
  - ACUTE PRERENAL FAILURE [None]
  - BLOOD PRESSURE DIASTOLIC DECREASED [None]
  - BLOOD SODIUM DECREASED [None]
  - DEHYDRATION [None]
  - DEPRESSED LEVEL OF CONSCIOUSNESS [None]
  - DRUG INTERACTION [None]
  - DRY SKIN [None]
  - ERYTHEMA [None]
  - FALL [None]
  - FLUID INTAKE REDUCED [None]
  - GENERAL PHYSICAL HEALTH DETERIORATION [None]
  - NEURODEGENERATIVE DISORDER [None]
  - PRURITUS [None]
  - SOMNOLENCE [None]
  - TONGUE DRY [None]
  - URINARY TRACT INFECTION [None]
